FAERS Safety Report 8716397 (Version 2)
Quarter: 2013Q4

REPORT INFORMATION
  Report Type: Spontaneous
  Country: US (occurrence: US)
  Receive Date: 20120810
  Receipt Date: 20131106
  Transmission Date: 20140711
  Serious: Yes (Hospitalization, Other)
  Sender: FDA-Public Use
  Company Number: US-009507513-1207USA011466

PATIENT
  Sex: Female

DRUGS (9)
  1. VICTRELIS [Suspect]
     Dosage: 4 DF, TID
  2. PEGASYS [Suspect]
     Route: 058
  3. COPEGUS [Suspect]
  4. LEXAPRO [Concomitant]
  5. ATIVAN [Concomitant]
  6. ADVAIR [Concomitant]
  7. ACCOLATE [Concomitant]
  8. PROAIR (ALBUTEROL SULFATE) [Concomitant]
  9. PROCARDIA XL [Concomitant]

REACTIONS (19)
  - Sinusitis [Unknown]
  - Pneumonia [Unknown]
  - Pancytopenia [Unknown]
  - Tinnitus [Unknown]
  - Back pain [Unknown]
  - Lip ulceration [Unknown]
  - Chapped lips [Unknown]
  - White blood cell count decreased [Unknown]
  - Dysphagia [Unknown]
  - Red blood cell count decreased [Unknown]
  - Middle ear effusion [Unknown]
  - Sensory disturbance [Unknown]
  - Oropharyngeal pain [Unknown]
  - Stomatitis [Unknown]
  - Anaemia [Unknown]
  - Weight decreased [Unknown]
  - Platelet count decreased [Unknown]
  - Rash [Unknown]
  - Fatigue [Unknown]
